FAERS Safety Report 8318547 (Version 3)
Quarter: 2012Q4

REPORT INFORMATION
  Report Type: 
  Country: FR (occurrence: FR)
  Receive Date: 20120103
  Receipt Date: 20121016
  Transmission Date: 20130627
  Serious: Yes (Other)
  Sender: FDA-Public Use
  Company Number: FR-B.I. PHARMACEUTICALS,INC./RIDGEFIELD-2011-FF-01240FF

PATIENT
  Age: 62 Year
  Sex: Female
  Weight: 77 kg

DRUGS (15)
  1. PRADAXA [Suspect]
     Indication: KNEE ARTHROPLASTY
     Dosage: 220 mg
     Route: 048
     Dates: start: 20111130, end: 20111212
  2. FEMARA [Concomitant]
  3. COVERSYL [Concomitant]
     Route: 048
  4. LASILIX [Concomitant]
     Route: 048
  5. EFFEXOR [Concomitant]
     Route: 048
  6. THERALENE [Concomitant]
  7. XANAX [Concomitant]
     Route: 048
  8. INIPOMP [Concomitant]
     Route: 048
  9. LYSANXIA [Concomitant]
     Route: 048
  10. ACUPAN [Concomitant]
  11. PARACETAMOL [Concomitant]
  12. TOPALGIC [Concomitant]
  13. ONDANSETRON [Concomitant]
  14. ACTISKENAN [Concomitant]
  15. KETOPROFEN [Concomitant]

REACTIONS (1)
  - Agranulocytosis [Recovered/Resolved]
